FAERS Safety Report 8824985 (Version 3)
Quarter: 2012Q4

REPORT INFORMATION
  Report Type: 
  Country: NL (occurrence: NL)
  Receive Date: 20121004
  Receipt Date: 20121114
  Transmission Date: 20130627
  Serious: Yes (Hospitalization)
  Sender: FDA-Public Use
  Company Number: NL-PFIZER INC-2012241400

PATIENT
  Age: 71 Year
  Sex: Male
  Weight: 116 kg

DRUGS (17)
  1. GENOTROPIN [Suspect]
     Indication: GROWTH HORMONE DEFICIENCY
     Dosage: 0.6 mg, 7 injections/week
     Route: 058
     Dates: start: 20030527
  2. GENOTROPIN [Suspect]
     Dosage: 0.4 mg, 7 injections/week
     Dates: start: 20060530
  3. CORTISONE ACETATE [Concomitant]
     Indication: ACTH DECREASED
     Dosage: 50 mg, 1x/day
     Dates: start: 19641015
  4. TESTOSTERONE [Concomitant]
     Indication: LH DECREASED
     Dosage: UNK
     Dates: start: 19641015
  5. TESTOSTERONE [Concomitant]
     Indication: FSH DECREASED
  6. TESTOSTERONE [Concomitant]
     Indication: TESTICULAR HYPOGONADISM
  7. VENTOLIN [Concomitant]
     Indication: CHRONIC BRONCHITIS
     Dosage: UNK
     Dates: start: 19830415
  8. BECOTIDE [Concomitant]
     Indication: CHRONIC BRONCHITIS
     Dosage: UNK
     Dates: start: 19830415
  9. LEVOTHYROXINE [Concomitant]
     Indication: TSH DECREASE
     Dosage: 150 ug, 1x/day
     Dates: start: 19941015
  10. LEVOTHYROXINE [Concomitant]
     Indication: PRIMARY HYPOTHYROIDISM
  11. OXIS [Concomitant]
     Indication: ASTHMA, UNSPECIFIED
     Dosage: UNK
     Dates: start: 19980201
  12. BERODUAL [Concomitant]
     Indication: ASTHMA, UNSPECIFIED
     Dosage: UNK
     Dates: start: 19981124
  13. PULMICORT [Concomitant]
     Indication: ASTHMA, UNSPECIFIED
     Dosage: UNK
     Dates: start: 19980201
  14. SUSTANON [Concomitant]
     Indication: LH DECREASED
     Dosage: 250 mg, every 3 weeks
     Dates: start: 20050524
  15. SUSTANON [Concomitant]
     Indication: FSH DECREASED
  16. SUSTANON [Concomitant]
     Indication: TESTICULAR HYPOGONADISM
  17. SYMBICORT [Concomitant]

REACTIONS (2)
  - Osteoarthritis [Recovered/Resolved]
  - Pneumonia [Unknown]
